FAERS Safety Report 9169338 (Version 3)
Quarter: 2013Q3

REPORT INFORMATION
  Report Type: Report from Study
  Country: US (occurrence: US)
  Receive Date: 20130318
  Receipt Date: 20130716
  Transmission Date: 20140515
  Serious: Yes (Death, Hospitalization)
  Sender: FDA-Public Use
  Company Number: US-ACTELION-A-US2013-80336

PATIENT
  Age: 51 Year
  Sex: Female

DRUGS (2)
  1. TRACLEER [Suspect]
     Indication: PULMONARY ARTERIAL HYPERTENSION
     Dosage: UNK
     Route: 048
     Dates: end: 20130227
  2. SILDENAFIL [Concomitant]

REACTIONS (11)
  - Multi-organ failure [Fatal]
  - Hepatic failure [Fatal]
  - Cardiorenal syndrome [Fatal]
  - Renal failure [Fatal]
  - Right ventricular failure [Fatal]
  - Fluid retention [Unknown]
  - Dyspnoea [Unknown]
  - Blood bilirubin increased [Unknown]
  - Fatigue [Unknown]
  - Decreased appetite [Unknown]
  - Listless [Unknown]
